FAERS Safety Report 8795436 (Version 2)
Quarter: 2015Q2

REPORT INFORMATION
  Report Type: Report from Study
  Country: US (occurrence: US)
  Receive Date: 20120917
  Receipt Date: 20150407
  Transmission Date: 20150821
  Serious: Yes (Death)
  Sender: FDA-Public Use
  Company Number: US-ROCHE-1126556

PATIENT
  Age: 63 Year
  Sex: Female

DRUGS (26)
  1. AVASTIN [Suspect]
     Active Substance: BEVACIZUMAB
     Route: 042
     Dates: start: 20090113
  2. BACTRIM [Suspect]
     Active Substance: SULFAMETHOXAZOLE\TRIMETHOPRIM
     Indication: PRODUCT USED FOR UNKNOWN INDICATION
     Route: 065
  3. DECADRON [Concomitant]
     Active Substance: DEXAMETHASONE
     Route: 042
  4. AVASTIN [Suspect]
     Active Substance: BEVACIZUMAB
     Indication: OVARIAN CANCER
     Route: 042
     Dates: start: 20070813
  5. AVASTIN [Suspect]
     Active Substance: BEVACIZUMAB
     Route: 042
  6. DECADRON [Concomitant]
     Active Substance: DEXAMETHASONE
     Route: 042
  7. TOPOTECAN [Concomitant]
     Active Substance: TOPOTECAN\TOPOTECAN HYDROCHLORIDE
     Route: 042
  8. TAXOL [Concomitant]
     Active Substance: PACLITAXEL
     Route: 065
  9. HEPARIN [Concomitant]
     Active Substance: HEPARIN SODIUM
     Dosage: 500 UNIT NOT REPORTED
     Route: 042
  10. TAXOL [Concomitant]
     Active Substance: PACLITAXEL
     Route: 065
  11. TAXOL [Concomitant]
     Active Substance: PACLITAXEL
     Route: 065
  12. AVASTIN [Suspect]
     Active Substance: BEVACIZUMAB
     Route: 042
     Dates: start: 20090414
  13. AVASTIN [Suspect]
     Active Substance: BEVACIZUMAB
     Route: 042
     Dates: start: 20090505
  14. BENADRYL [Concomitant]
     Active Substance: DIPHENHYDRAMINE HYDROCHLORIDE
     Route: 042
  15. ZANTAC [Concomitant]
     Active Substance: RANITIDINE HYDROCHLORIDE
     Route: 065
  16. ABRAXANE [Concomitant]
     Active Substance: PACLITAXEL
     Route: 042
  17. AZITHROMYCIN [Concomitant]
     Active Substance: AZITHROMYCIN ANHYDROUS
  18. NEULASTA [Concomitant]
     Active Substance: PEGFILGRASTIM
     Route: 065
  19. AVASTIN [Suspect]
     Active Substance: BEVACIZUMAB
     Route: 042
     Dates: start: 20090915
  20. ZOFRAN [Concomitant]
     Active Substance: ONDANSETRON HYDROCHLORIDE
     Route: 048
  21. ARANESP [Concomitant]
     Active Substance: DARBEPOETIN ALFA
     Route: 058
  22. ANZEMET [Concomitant]
     Active Substance: DOLASETRON MESYLATE
     Dosage: 100 UNIT NOT REPORTED
     Route: 042
  23. TOPOTECAN [Concomitant]
     Active Substance: TOPOTECAN\TOPOTECAN HYDROCHLORIDE
     Route: 042
  24. CARBOPLATIN. [Concomitant]
     Active Substance: CARBOPLATIN
     Route: 065
  25. CARBOPLATIN. [Concomitant]
     Active Substance: CARBOPLATIN
     Route: 065
  26. ALOXI [Concomitant]
     Active Substance: PALONOSETRON HYDROCHLORIDE
     Route: 042

REACTIONS (28)
  - Constipation [Unknown]
  - Weight loss poor [Unknown]
  - Chest discomfort [Unknown]
  - Pyrexia [Unknown]
  - Dyspepsia [Unknown]
  - Tearfulness [Unknown]
  - Arthralgia [Unknown]
  - Sinusitis [Unknown]
  - Epistaxis [Unknown]
  - Hypersensitivity [Unknown]
  - Protein urine [Unknown]
  - Death [Fatal]
  - Nausea [Unknown]
  - Fatigue [Unknown]
  - Anxiety [Unknown]
  - Neuropathy peripheral [Unknown]
  - Cough [Unknown]
  - Stomatitis [Unknown]
  - Back pain [Unknown]
  - Poor quality sleep [Unknown]
  - Decreased appetite [Unknown]
  - Dyspnoea exertional [Unknown]
  - Hot flush [Unknown]
  - Insomnia [Unknown]
  - Depression [Unknown]
  - Musculoskeletal pain [Unknown]
  - Off label use [Unknown]
  - Stress [Unknown]

NARRATIVE: CASE EVENT DATE: 20100809
